FAERS Safety Report 7505620-3 (Version None)
Quarter: 2011Q2

REPORT INFORMATION
  Report Type: 
  Country: None (occurrence: None)
  Receive Date: 20110526
  Receipt Date: 20110519
  Transmission Date: 20111010
  Serious: Yes (Death, Life-Threatening, Hospitalization, Other)
  Sender: FDA-Public Use
  Company Number: JP-PFIZER INC-2011107158

PATIENT
  Age: 71 Year
  Sex: Male
  Weight: 67.9 kg

DRUGS (2)
  1. SUTENT [Suspect]
     Dosage: 37.5 MG, 1X/DAY
     Route: 048
     Dates: start: 20110328, end: 20110418
  2. SUTENT [Suspect]
     Indication: RENAL CELL CARCINOMA
     Dosage: 50 MG, 1X/DAY
     Route: 048
     Dates: start: 20110207, end: 20110306

REACTIONS (8)
  - RESPIRATORY FAILURE [None]
  - ANAEMIA [None]
  - RENAL CELL CARCINOMA [None]
  - GASTROINTESTINAL HAEMORRHAGE [None]
  - BONE MARROW FAILURE [None]
  - HYPERTENSION [None]
  - DISEASE PROGRESSION [None]
  - PLATELET COUNT DECREASED [None]
